FAERS Safety Report 6405279-2 (Version None)
Quarter: 2009Q4

REPORT INFORMATION
  Report Type: 
  Country: None (occurrence: None)
  Receive Date: 20091016
  Receipt Date: 20091016
  Transmission Date: 20100525
  Serious: Yes (Hospitalization)
  Sender: FDA-Public Use
  Company Number: None

PATIENT
  Sex: Female
  Weight: 63.5036 kg

DRUGS (2)
  1. AVELOX [Suspect]
     Indication: BREATH SOUNDS ABNORMAL
     Dosage: 400 MG 1 PER DA`
     Dates: start: 20090428
  2. AVELOX [Suspect]
     Indication: BRONCHITIS
     Dosage: 400 MG 1 PER DA`
     Dates: start: 20090428

REACTIONS (2)
  - ARTHRALGIA [None]
  - TENDON RUPTURE [None]
